FAERS Safety Report 23599033 (Version 1)
Quarter: 2024Q1

REPORT INFORMATION
  Report Type: Report from Study
  Country: ES (occurrence: ES)
  Receive Date: 20240306
  Receipt Date: 20240306
  Transmission Date: 20240410
  Serious: Yes (Life-Threatening, Other)
  Sender: FDA-Public Use
  Company Number: ES-CELLTRION INC.-2024ES005022

PATIENT

DRUGS (13)
  1. RITUXIMAB [Suspect]
     Active Substance: RITUXIMAB
     Indication: Diffuse large B-cell lymphoma
     Dosage: ON 26/SEP/2023 HE RECEIVED MOST RECENT DOSE OF STUDY DRUG (375 MG/M2) PRIOR TO AE/SAE; 3 WEEKS
     Route: 042
     Dates: start: 20230609
  2. DOXORUBICIN [Suspect]
     Active Substance: DOXORUBICIN
     Indication: Diffuse large B-cell lymphoma
     Dosage: ON 26/SEP/2023 HE RECEIVED MOST RECENT DOSE OF STUDY DRUG (50 MG/M2) PRIOR TO AE/SAE; 3 WEEKS
     Route: 042
     Dates: start: 20230608
  3. PREDNISOLONE [Suspect]
     Active Substance: PREDNISOLONE
     Indication: Diffuse large B-cell lymphoma
     Dosage: ON 27/SEP/2023 HE RECEIVED MOST RECENT DOSE OF STUDY DRUG (100 MG) PRIOR TO AE/SAE; 3 WEEKS
     Route: 042
  4. METHYLPREDNISOLONE [Suspect]
     Active Substance: METHYLPREDNISOLONE
     Indication: Diffuse large B-cell lymphoma
     Dosage: ON 27/SEP/2023 HE RECEIVED MOST RECENT DOSE OF STUDY DRUG (100 MG) PRIOR TO AE/SAE; 3 WEEKS
     Route: 042
     Dates: start: 20230608
  5. CYCLOPHOSPHAMIDE [Suspect]
     Active Substance: CYCLOPHOSPHAMIDE
     Indication: Diffuse large B-cell lymphoma
     Dosage: ON 26/SEP/2023 HE RECEIVED MOST RECENT DOSE OF STUDY DRUG (750 MG/M2) PRIOR TO AE/SAE; 3 WEEKS
     Route: 042
     Dates: start: 20230608
  6. VINCRISTINE [Suspect]
     Active Substance: VINCRISTINE
     Indication: Diffuse large B-cell lymphoma
     Dosage: ON 26/SEP/2023 HE RECEIVED MOST RECENT DOSE OF STUDY DRUG (2 MG) PRIOR TO AE/SAE; 3 WEEKS
     Route: 042
     Dates: start: 20230608
  7. PREDNISONE [Suspect]
     Active Substance: PREDNISONE
     Indication: Diffuse large B-cell lymphoma
     Dosage: ON 26/SEP/2023 HE RECEIVED MOST RECENT DOSE OF STUDY DRUG (80 MG) PRIOR TO AE/SAE; 3 WEEKS
     Route: 042
     Dates: start: 20230610
  8. SULFAMETHOXAZOLE\TRIMETHOPRIM [Concomitant]
     Active Substance: SULFAMETHOXAZOLE\TRIMETHOPRIM
     Indication: Diffuse large B-cell lymphoma
     Dosage: 160 MG, QD
     Route: 065
     Dates: start: 20230609
  9. ASCORBIC ACID\POTASSIUM BICARBONATE [Concomitant]
     Active Substance: ASCORBIC ACID\POTASSIUM BICARBONATE
     Indication: Hypokalaemia
     Dosage: UNK, BID
     Dates: start: 20231127
  10. EPOETIN ALFA [Concomitant]
     Active Substance: ERYTHROPOIETIN
     Indication: Anaemia
     Dosage: 40000 IU, 1/WEEK
     Dates: start: 20231127
  11. MAGNESIUM [Concomitant]
     Active Substance: MAGNESIUM
     Indication: Hypomagnesaemia
     Dosage: 53 MG; 0.33 DAY
     Dates: start: 20231016
  12. ENOXAPARIN [Concomitant]
     Active Substance: ENOXAPARIN
     Dosage: 80 MG, 0.5 DAY
     Dates: start: 20230506
  13. GLOFITAMAB [Concomitant]
     Active Substance: GLOFITAMAB
     Indication: Diffuse large B-cell lymphoma
     Dosage: ON 19/DEC/2023 HE RECEIVED MOST RECENT DOSE OF STUDY DRUG (30 MG) PRIOR TO AE/SAE, 3 WEEKS
     Dates: start: 20230728

REACTIONS (2)
  - Large intestinal obstruction [Recovered/Resolved]
  - Product use issue [Unknown]

NARRATIVE: CASE EVENT DATE: 20240126
